FAERS Safety Report 5964333-X (Version None)
Quarter: 2008Q4

REPORT INFORMATION
  Report Type: 
  Country: None (occurrence: None)
  Receive Date: 20081124
  Receipt Date: 20081114
  Transmission Date: 20090506
  Serious: Yes (Hospitalization, Congenital Anomaly)
  Sender: FDA-Public Use
  Company Number: US-MERCK-0509USA04280

PATIENT
  Age: 0 Day
  Sex: Male

DRUGS (3)
  1. SINGULAIR [Suspect]
     Indication: HYPERSENSITIVITY
     Route: 064
     Dates: start: 20040101
  2. SINGULAIR [Suspect]
     Indication: ASTHMA
     Route: 064
     Dates: start: 20040101
  3. PULMICORT-100 [Concomitant]
     Route: 064

REACTIONS (1)
  - HYPOSPADIAS [None]
